FAERS Safety Report 9051315 (Version 1)
Quarter: 2013Q1

REPORT INFORMATION
  Report Type: Spontaneous
  Country: ZA (occurrence: ZA)
  Receive Date: 20130206
  Receipt Date: 20130206
  Transmission Date: 20140127
  Serious: Yes (Other)
  Sender: FDA-Public Use
  Company Number: PHHY2013ZA008737

PATIENT
  Age: 86 Year
  Sex: Female

DRUGS (2)
  1. ZOMETA [Suspect]
     Indication: PARATHYROID DISORDER
     Dosage: 4 MG
     Dates: start: 2011
  2. SYMBICORT [Concomitant]
     Indication: ASTHMA
     Dosage: UNK UKN, UNK

REACTIONS (1)
  - Osteoporosis [Unknown]
